FAERS Safety Report 5087809-9 (Version None)
Quarter: 2006Q3

REPORT INFORMATION
  Report Type: 
  Country: None (occurrence: None)
  Receive Date: 20060824
  Receipt Date: 20060803
  Transmission Date: 20061208
  Serious: Yes (Death, Hospitalization)
  Sender: FDA-Public Use
  Company Number: PHRM2006FR02247

PATIENT
  Age: 95 Year
  Sex: Male

DRUGS (2)
  1. ZOMETA [Suspect]
     Indication: METASTASES TO BONE
     Dosage: 4 MG, QMO
     Dates: start: 20051101, end: 20060529
  2. ENANTONE [Concomitant]
     Indication: BREAST CANCER METASTATIC
     Dosage: 1 DF, QMO
     Route: 058
     Dates: start: 20051101, end: 20060529

REACTIONS (3)
  - ANURIA [None]
  - BLOOD CREATININE INCREASED [None]
  - RENAL FAILURE ACUTE [None]
